FAERS Safety Report 15313258 (Version 2)
Quarter: 2019Q1

REPORT INFORMATION
  Report Type: Spontaneous
  Country: US (occurrence: US)
  Receive Date: 20180823
  Receipt Date: 20190314
  Transmission Date: 20190417
  Serious: Yes (Hospitalization)
  Sender: FDA-Public Use
  Company Number: US-JNJFOC-20180814077

PATIENT
  Age: 67 Year
  Sex: Female

DRUGS (3)
  1. XARELTO [Suspect]
     Active Substance: RIVAROXABAN
     Indication: ATRIAL FLUTTER
     Dosage: VARYING DOSES OF RIVAROXABAN 20 MG 1 TABLET DAILY AND RIVAROXABAN 15 MG
     Route: 048
     Dates: start: 20120919, end: 20121024
  2. XARELTO [Suspect]
     Active Substance: RIVAROXABAN
     Indication: ATRIAL FIBRILLATION
     Dosage: VARYING DOSES OF RIVAROXABAN 20 MG 1 TABLET DAILY AND RIVAROXABAN 15 MG
     Route: 048
     Dates: start: 20120919, end: 20121024
  3. XARELTO [Suspect]
     Active Substance: RIVAROXABAN
     Indication: CEREBROVASCULAR ACCIDENT PROPHYLAXIS
     Dosage: VARYING DOSES OF RIVAROXABAN 20 MG 1 TABLET DAILY AND RIVAROXABAN 15 MG
     Route: 048
     Dates: start: 20120919, end: 20121024

REACTIONS (1)
  - Diverticulum intestinal haemorrhagic [Recovering/Resolving]

NARRATIVE: CASE EVENT DATE: 201210
